FAERS Safety Report 13857933 (Version 3)
Quarter: 2017Q4

REPORT INFORMATION
  Report Type: Spontaneous
  Country: BR (occurrence: BR)
  Receive Date: 20170811
  Receipt Date: 20171011
  Transmission Date: 20180320
  Serious: Yes (Hospitalization, Other)
  Sender: FDA-Public Use
  Company Number: BR-ROCHE-1972492

PATIENT
  Sex: Female
  Weight: 57 kg

DRUGS (34)
  1. TEVAOXALI [Suspect]
     Active Substance: OXALIPLATIN
     Indication: SMALL INTESTINE CARCINOMA
     Dosage: SECOND CYCLE OF FOLFOX (TEVAOXALI 137.36MG + FAULDLEUCO 646.4MG + FAULDFLUOR 646.4MG + BI 3878.4MG*)
     Route: 042
     Dates: start: 20170621
  2. IRINOTECAN [Suspect]
     Active Substance: IRINOTECAN
     Route: 065
     Dates: start: 20170201
  3. VONAU FLASH [Concomitant]
  4. AVASTIN [Suspect]
     Active Substance: BEVACIZUMAB
     Route: 042
     Dates: start: 20170201
  5. FAULDLEUCO [Suspect]
     Active Substance: LEUCOVORIN CALCIUM
     Indication: COLON CANCER
     Dosage: FIRST CYCLE OF FOLFOX (TEVAOXALI 137.36MG + FAULDLEUCO 646.4MG + FAULDFLUOR 646.4MG + BI 3878.4MG*)
     Route: 042
     Dates: start: 20170607
  6. FOLINIC ACID [Suspect]
     Active Substance: LEUCOVORIN
     Route: 065
     Dates: start: 20170201
  7. FOLINIC ACID [Suspect]
     Active Substance: LEUCOVORIN
     Route: 065
     Dates: start: 20170607
  8. FLUOROURACIL. [Suspect]
     Active Substance: FLUOROURACIL
     Dosage: FOLFIRI (FOLINIC ACID, FLUOROURACIL AND IRINOTECAN) + AVASTIN FOR 12 APPLICATIONS FROM NOV-2015 TO M
     Route: 065
     Dates: start: 201511, end: 201605
  9. PURAN [Concomitant]
     Active Substance: LEVOTHYROXINE SODIUM
  10. AVASTIN [Suspect]
     Active Substance: BEVACIZUMAB
     Indication: COLON CANCER
     Dosage: SECOND CYCLE OF FOLFOX (TEVAOXALI 137.36MG + FAULDLEUCO 646.4MG + FAULDFLUOR 646.4MG + BI 3878.4MG*)
     Route: 042
     Dates: start: 20170621
  11. AVASTIN [Suspect]
     Active Substance: BEVACIZUMAB
     Dosage: AGAIN IN 2017, FOLFIRI (FOLINIC ACID, FLUOROURACIL AND IRINOTECAN) + AVASTINWITH 9 APPLICATIONS UNTI
     Route: 042
     Dates: start: 2017, end: 20170524
  12. AVASTIN [Suspect]
     Active Substance: BEVACIZUMAB
     Dosage: FOLFIRI (FOLINIC ACID, FLUOROURACIL AND IRINOTECAN) + AVASTIN FOR 12 APPLICATIONS FROM NOV-2015 TO M
     Route: 042
     Dates: start: 201511, end: 201605
  13. FLUOROURACIL. [Suspect]
     Active Substance: FLUOROURACIL
     Route: 065
     Dates: start: 20170607
  14. IRINOTECAN [Suspect]
     Active Substance: IRINOTECAN
     Indication: SMALL INTESTINE CARCINOMA
     Dosage: AGAIN IN 2017 WITH 9 APPLICATIONS UNTIL 24-MAY-2017.
     Route: 065
     Dates: start: 2017, end: 20170524
  15. OXALIPLATIN. [Suspect]
     Active Substance: OXALIPLATIN
     Route: 042
     Dates: start: 20170607
  16. SUCRAFILM [Concomitant]
  17. AVASTIN [Suspect]
     Active Substance: BEVACIZUMAB
     Indication: SMALL INTESTINE CARCINOMA
     Dosage: FIRST CYCLE OF FOLFOX (TEVAOXALI 137.36MG + FAULDLEUCO 646.4MG + FAULDFLUOR 646.4MG + BI 3878.4MG*)
     Route: 042
     Dates: start: 20170607
  18. FAULDLEUCO [Suspect]
     Active Substance: LEUCOVORIN CALCIUM
     Indication: SMALL INTESTINE CARCINOMA
     Dosage: SECOND CYCLE OF FOLFOX (TEVAOXALI 137.36MG + FAULDLEUCO 646.4MG + FAULDFLUOR 646.4MG + BI 3878.4MG*)
     Route: 042
     Dates: start: 20170621
  19. FOLINIC ACID [Suspect]
     Active Substance: LEUCOVORIN
     Indication: SMALL INTESTINE CARCINOMA
     Dosage: FOLFIRI (FOLINIC ACID, FLUOROURACIL AND IRINOTECAN) + AVASTIN FOR 12 APPLICATIONS FROM NOV-2015 TO M
     Route: 065
     Dates: start: 201511, end: 201605
  20. OXALIPLATIN. [Suspect]
     Active Substance: OXALIPLATIN
     Indication: SMALL INTESTINE CARCINOMA
     Route: 042
     Dates: start: 20170201
  21. PANTOPRAZOLE [Concomitant]
     Active Substance: PANTOPRAZOLE
  22. JANUVIA [Concomitant]
     Active Substance: SITAGLIPTIN PHOSPHATE
  23. TEVAOXALI [Suspect]
     Active Substance: OXALIPLATIN
     Indication: COLON CANCER
     Dosage: FIRST CYCLE OF FOLFOX (TEVAOXALI 137.36MG + FAULDLEUCO 646.4MG + FAULDFLUOR 646.4MG + BI 3878.4MG*)
     Route: 042
     Dates: start: 20170607
  24. FLUOROURACIL. [Suspect]
     Active Substance: FLUOROURACIL
     Route: 065
     Dates: start: 20170201
  25. DEXAMETHASONE. [Concomitant]
     Active Substance: DEXAMETHASONE
  26. IRINOTECAN [Suspect]
     Active Substance: IRINOTECAN
     Dosage: FOLFIRI (FOLINIC ACID, FLUOROURACIL AND IRINOTECAN) + AVASTIN FOR 12 APPLICATIONS FROM NOV-2015 TO M
     Route: 065
     Dates: start: 201511, end: 201605
  27. IRINOTECAN [Suspect]
     Active Substance: IRINOTECAN
     Route: 065
     Dates: start: 20170607
  28. MICARDIS [Concomitant]
     Active Substance: TELMISARTAN
  29. GLIFAGE XR [Concomitant]
     Active Substance: METFORMIN HYDROCHLORIDE
  30. CLEXANE [Concomitant]
     Active Substance: ENOXAPARIN SODIUM
     Route: 065
  31. MOTILIUM [Concomitant]
     Active Substance: DOMPERIDONE
  32. DIVELOL [Concomitant]
  33. FOLINIC ACID [Suspect]
     Active Substance: LEUCOVORIN
     Indication: SMALL INTESTINE CARCINOMA
     Dosage: AGAIN IN 2017 WITH 9 APPLICATIONS UNTIL 24-MAY-2017.
     Route: 065
     Dates: start: 2017, end: 20170524
  34. FLUOROURACIL. [Suspect]
     Active Substance: FLUOROURACIL
     Indication: SMALL INTESTINE CARCINOMA
     Dosage: AGAIN IN 2017 WITH 9 APPLICATIONS UNTIL 24-MAY-2017.
     Route: 065
     Dates: start: 2017, end: 20170524

REACTIONS (17)
  - Paraesthesia [Unknown]
  - Mucosal inflammation [Unknown]
  - Nausea [Unknown]
  - Pulmonary mass [Unknown]
  - Hypomagnesaemia [Unknown]
  - Vomiting [Unknown]
  - Cardiotoxicity [Unknown]
  - Disease progression [Unknown]
  - Diarrhoea [Unknown]
  - Anal inflammation [Unknown]
  - Thrombocytopenia [Unknown]
  - Toxicity to various agents [Unknown]
  - Stomatitis [Unknown]
  - Chest pain [Unknown]
  - Urosepsis [Unknown]
  - Decreased appetite [Unknown]
  - Fatigue [Unknown]
